FAERS Safety Report 8776030 (Version 3)
Quarter: 2012Q4

REPORT INFORMATION
  Report Type: 
  Country: FR (occurrence: FR)
  Receive Date: 20120910
  Receipt Date: 20121022
  Transmission Date: 20130627
  Serious: Yes (Life-Threatening, Hospitalization, Disabling, Other)
  Sender: FDA-Public Use
  Company Number: FR-US-EMD SERONO, INC.-7158919

PATIENT
  Age: 39 Year
  Sex: Female
  Weight: 63 kg

DRUGS (1)
  1. REBIF [Suspect]
     Indication: MULTIPLE SCLEROSIS
     Route: 058
     Dates: start: 201202, end: 20120806

REACTIONS (4)
  - Posterior reversible encephalopathy syndrome [Unknown]
  - Epilepsy [Unknown]
  - Hypertensive crisis [Unknown]
  - Haemolytic uraemic syndrome [Not Recovered/Not Resolved]
